FAERS Safety Report 15397994 (Version 1)
Quarter: 2018Q3

REPORT INFORMATION
  Report Type: Spontaneous
  Country: US (occurrence: US)
  Receive Date: 20180918
  Receipt Date: 20180918
  Transmission Date: 20181010
  Serious: No
  Sender: FDA-Public Use
  Company Number: US-ELI_LILLY_AND_COMPANY-US201808015864

PATIENT
  Age: 71 Year
  Sex: Male

DRUGS (1)
  1. CIALIS [Suspect]
     Active Substance: TADALAFIL
     Indication: ERECTILE DYSFUNCTION
     Dosage: 0.5 DF, PRN
     Route: 048

REACTIONS (4)
  - Drug effect delayed [Unknown]
  - Wrong technique in product usage process [Unknown]
  - Counterfeit product administered [Unknown]
  - Drug ineffective [Not Recovered/Not Resolved]
